FAERS Safety Report 4390320-1 (Version None)
Quarter: 2004Q2

REPORT INFORMATION
  Report Type: 
  Country: None (occurrence: None)
  Receive Date: 20040630
  Receipt Date: 20040615
  Transmission Date: 20050107
  Serious: Yes (Hospitalization)
  Sender: FDA-Public Use
  Company Number: 2004-BP-04718NB

PATIENT
  Age: 80 Year
  Sex: Male

DRUGS (1)
  1. MICARDIS [Suspect]
     Dosage: 40 MG (NR) PO
     Route: 048
     Dates: start: 20040510, end: 20040614

REACTIONS (2)
  - LIVER DISORDER [None]
  - RENAL DISORDER [None]
